FAERS Safety Report 11777432 (Version 2)
Quarter: 2015Q4

REPORT INFORMATION
  Report Type: Spontaneous
  Country: US (occurrence: US)
  Receive Date: 20151125
  Receipt Date: 20151207
  Transmission Date: 20160304
  Serious: No
  Sender: FDA-Public Use
  Company Number: US-BAYER-2015-470192

PATIENT
  Age: 59 Year
  Sex: Female
  Weight: 54.42 kg

DRUGS (1)
  1. CHILDREN CLARITIN ALLERGY [Suspect]
     Active Substance: LORATADINE
     Indication: URTICARIA
     Dosage: 4 DF, ONCE
     Route: 048
     Dates: start: 20151112

REACTIONS (4)
  - Oropharyngeal pain [Recovered/Resolved]
  - Glossodynia [Not Recovered/Not Resolved]
  - Product use issue [Unknown]
  - Product use issue [None]

NARRATIVE: CASE EVENT DATE: 20151112
